FAERS Safety Report 6415852-3 (Version None)
Quarter: 2009Q4

REPORT INFORMATION
  Report Type: 
  Country: None (occurrence: None)
  Receive Date: 20091027
  Receipt Date: 20091016
  Transmission Date: 20100525
  Serious: Yes (Other)
  Sender: FDA-Public Use
  Company Number: ZA-BAXTER-2009BH016171

PATIENT
  Age: 22 Year
  Sex: Female
  Weight: 62 kg

DRUGS (12)
  1. SUPRANE [Suspect]
     Indication: GENERAL ANAESTHESIA
     Route: 065
     Dates: start: 20091014, end: 20091014
  2. KYTRIL [Suspect]
     Indication: GENERAL ANAESTHESIA
     Route: 065
     Dates: start: 20091014, end: 20091014
  3. DIPRIVAN [Suspect]
     Indication: GENERAL ANAESTHESIA
     Route: 065
     Dates: start: 20091014, end: 20091014
  4. LAMOTRIGINE [Concomitant]
     Indication: CONVULSION
     Route: 048
  5. GLUCOPHAGE [Concomitant]
     Indication: TYPE 2 DIABETES MELLITUS
     Route: 065
  6. MORPHINE [Concomitant]
     Indication: DRUG USE FOR UNKNOWN INDICATION
     Route: 065
  7. ULTIVA [Concomitant]
     Indication: DRUG USE FOR UNKNOWN INDICATION
     Route: 065
  8. DEXAMETHASONE [Concomitant]
     Indication: DRUG USE FOR UNKNOWN INDICATION
     Route: 065
  9. MEFOXIN [Concomitant]
     Indication: DRUG USE FOR UNKNOWN INDICATION
     Route: 065
  10. TROCRIUM [Concomitant]
     Indication: DRUG USE FOR UNKNOWN INDICATION
     Route: 065
  11. NEOSTIGMINE [Concomitant]
     Indication: DRUG USE FOR UNKNOWN INDICATION
     Route: 065
  12. ROBINUL [Concomitant]
     Indication: DRUG USE FOR UNKNOWN INDICATION
     Route: 065

REACTIONS (1)
  - GRAND MAL CONVULSION [None]
